FAERS Safety Report 7006273-3 (Version None)
Quarter: 2010Q3

REPORT INFORMATION
  Report Type: 
  Country: None (occurrence: None)
  Receive Date: 20100917
  Receipt Date: 20100907
  Transmission Date: 20110219
  Serious: Yes (Other)
  Sender: FDA-Public Use
  Company Number: 018505

PATIENT

DRUGS (1)
  1. LEVETIRACETAM [Suspect]
     Indication: EPILEPSY
     Dosage: (10 MG/KG, INCREASED WITH 2 WEEK STEPS OF 10MG/KG/DAY)

REACTIONS (2)
  - CONDITION AGGRAVATED [None]
  - CONVULSION [None]
